FAERS Safety Report 22958939 (Version 2)
Quarter: 2023Q4

REPORT INFORMATION
  Report Type: Spontaneous
  Country: IT (occurrence: IT)
  Receive Date: 20230919
  Receipt Date: 20231219
  Transmission Date: 20240109
  Serious: Yes (Hospitalization, Other)
  Sender: FDA-Public Use
  Company Number: IT-BRISTOL-MYERS SQUIBB COMPANY-2023-132841

PATIENT
  Age: 76 Year

DRUGS (1)
  1. NIVOLUMAB [Suspect]
     Active Substance: NIVOLUMAB
     Indication: Malignant melanoma
     Dosage: DOSE : UNAV;     FREQ : UNAV

REACTIONS (4)
  - Psoriasis [Recovering/Resolving]
  - Gastrointestinal disorder [Unknown]
  - Clostridium difficile colitis [Unknown]
  - Diabetes mellitus [Unknown]
